FAERS Safety Report 6534589-3 (Version None)
Quarter: 2010Q1

REPORT INFORMATION
  Report Type: 
  Country: None (occurrence: None)
  Receive Date: 20100112
  Receipt Date: 20100108
  Transmission Date: 20100710
  Serious: Yes (Other)
  Sender: FDA-Public Use
  Company Number: A0838509A

PATIENT
  Age: 47 Year
  Sex: Female

DRUGS (5)
  1. BUPROPION HYDROCHLORIDE [Suspect]
     Dosage: 2TAB PER DAY
     Route: 048
     Dates: start: 20090301, end: 20091101
  2. PAROXETINE HCL [Suspect]
     Dosage: 40MG PER DAY
     Route: 048
     Dates: start: 20091201, end: 20091201
  3. SEROQUEL [Concomitant]
  4. LISINOPRIL [Concomitant]
  5. ESTROGEN [Concomitant]

REACTIONS (6)
  - AGGRESSION [None]
  - DEPRESSION [None]
  - IMPATIENCE [None]
  - IRRITABILITY [None]
  - LOSS OF LIBIDO [None]
  - TENSION [None]
